FAERS Safety Report 5218058-9 (Version None)
Quarter: 2007Q1

REPORT INFORMATION
  Report Type: 
  Country: None (occurrence: None)
  Receive Date: 20061130
  Receipt Date: 20060901
  Transmission Date: 20070707
  Serious: Yes (Other)
  Sender: FDA-Public Use
  Company Number: US200609001506

PATIENT
  Age: 33 Year
  Sex: Female
  Weight: 117.9 kg

DRUGS (6)
  1. ZYPREXA [Suspect]
     Indication: DEPRESSION
     Dates: start: 20050201, end: 20050401
  2. WELLBUTRIN [Concomitant]
  3. REMETRON /NET/(MIRTAZAPINE) [Concomitant]
  4. ZOLOFT [Concomitant]
  5. EFFEXOR [Concomitant]
  6. ESTROGENS CONJUGATED W/PROGESTERONE (ESTROGENS CONJUGATED, PROGESTERON [Concomitant]

REACTIONS (6)
  - BLOOD TRIGLYCERIDES INCREASED [None]
  - DIABETES MELLITUS [None]
  - DIABETIC HYPEROSMOLAR COMA [None]
  - HYPERTENSION [None]
  - METABOLIC DISORDER [None]
  - OBESITY [None]
